FAERS Safety Report 18266647 (Version 1)
Quarter: 2020Q3

REPORT INFORMATION
  Report Type: Spontaneous
  Country: IL (occurrence: IL)
  Receive Date: 20200915
  Receipt Date: 20200915
  Transmission Date: 20201103
  Serious: Yes (Hospitalization, Other)
  Sender: FDA-Public Use
  Company Number: IL-LUPIN PHARMACEUTICALS INC.-2020-05939

PATIENT
  Age: 84 Year
  Sex: Female

DRUGS (5)
  1. BISOPROLOL [Suspect]
     Active Substance: BISOPROLOL
     Indication: HYPERTENSION
     Dosage: UNK
     Route: 065
  2. CHLOROQUINE DIPHOSPHATE [Suspect]
     Active Substance: CHLOROQUINE PHOSPHATE
     Indication: COVID-19
     Dosage: 500 MILLIGRAM, BID
     Route: 048
  3. MEMANTINE. [Suspect]
     Active Substance: MEMANTINE
     Indication: DEMENTIA ALZHEIMER^S TYPE
     Dosage: UNK
     Route: 065
  4. LETROZOLE. [Suspect]
     Active Substance: LETROZOLE
     Indication: BREAST CANCER METASTATIC
     Dosage: UNK
     Route: 065
  5. APIXABAN [Concomitant]
     Active Substance: APIXABAN
     Indication: PULMONARY EMBOLISM
     Dosage: UNK
     Route: 065

REACTIONS (2)
  - Bradycardia [Recovered/Resolved]
  - Torsade de pointes [Recovered/Resolved]
